FAERS Safety Report 4496648-9 (Version None)
Quarter: 2004Q4

REPORT INFORMATION
  Report Type: 
  Country: None (occurrence: None)
  Receive Date: 20041102
  Receipt Date: 20041018
  Transmission Date: 20050328
  Serious: Yes (Other)
  Sender: FDA-Public Use
  Company Number: 200410280BBE

PATIENT
  Age: 11 Year
  Sex: Male

DRUGS (3)
  1. KOATE [Suspect]
     Indication: FACTOR VIII DEFICIENCY
     Dates: start: 19870101, end: 19890101
  2. PROFILATE [Suspect]
     Indication: FACTOR VIII DEFICIENCY
     Dates: start: 19860101, end: 19870101
  3. FACTORATE (FACTOR VIII (ANTIHAEMOPHILIC FACTOR)) [Suspect]
     Indication: FACTOR VIII DEFICIENCY
     Dates: start: 19850101, end: 19860101

REACTIONS (3)
  - HEPATITIS B VIRUS [None]
  - HEPATITIS C VIRUS [None]
  - HIV TEST POSITIVE [None]
